FAERS Safety Report 6263008-X (Version None)
Quarter: 2009Q3

REPORT INFORMATION
  Report Type: 
  Country: None (occurrence: None)
  Receive Date: 20090710
  Receipt Date: 20090702
  Transmission Date: 20100115
  Serious: Yes (Hospitalization)
  Sender: FDA-Public Use
  Company Number: US-BIOGENIDEC-2008BI024754

PATIENT
  Age: 55 Year
  Sex: Female

DRUGS (2)
  1. AVONEX [Suspect]
     Indication: MULTIPLE SCLEROSIS
     Route: 030
     Dates: start: 20030819, end: 20040511
  2. AVONEX [Suspect]
     Route: 030
     Dates: start: 20050621

REACTIONS (5)
  - ARTHRALGIA [None]
  - ARTHRITIS [None]
  - CHONDROPATHY [None]
  - GAIT DISTURBANCE [None]
  - JOINT STIFFNESS [None]
